FAERS Safety Report 5117582-7 (Version None)
Quarter: 2006Q3

REPORT INFORMATION
  Report Type: 
  Country: None (occurrence: None)
  Receive Date: 20060929
  Receipt Date: 20060920
  Transmission Date: 20061208
  Serious: Yes (Hospitalization)
  Sender: FDA-Public Use
  Company Number: AT-ROCHE-463998

PATIENT
  Sex: Male
  Weight: 65 kg

DRUGS (12)
  1. PEG-INTERFERON ALFA 2A (RO 25-8310) [Suspect]
     Dosage: FORM = INJECTION DATE OF LAST DOSE PRIOR TO SAE = 15 SEPTEMBER 2006
     Route: 058
     Dates: start: 20060901
  2. RIBAVIRIN [Suspect]
     Route: 048
     Dates: start: 20060901, end: 20060919
  3. STAVUDINE [Concomitant]
  4. TENOFOVIR [Concomitant]
  5. EFAVIRENZ [Concomitant]
  6. UNSPECIFIED DRUG [Concomitant]
     Dosage: DRUG REPORTED AS FLUORONAID
  7. RUTOSID [Concomitant]
  8. FUROSEMIDE [Concomitant]
  9. SPIRONOLACTONE + BUTIZIDE [Concomitant]
     Dosage: DOSE = 200NG/20NG
  10. SALMETEROL [Concomitant]
  11. PANTOPRAZOL [Concomitant]
  12. OXAZEPAM [Concomitant]

REACTIONS (1)
  - SYNCOPE [None]
